FAERS Safety Report 16790702 (Version 1)
Quarter: 2019Q4

REPORT INFORMATION
  Report Type: Spontaneous
  Country: US (occurrence: US)
  Receive Date: 20190909
  Receipt Date: 20190909
  Transmission Date: 20200122
  Serious: No
  Sender: FDA-Public Use
  Company Number: None

PATIENT
  Sex: Female

DRUGS (7)
  1. GABAPENTIN. [Concomitant]
     Active Substance: GABAPENTIN
  2. OCALIVA [Suspect]
     Active Substance: OBETICHOLIC ACID
     Indication: PRIMARY BILIARY CHOLANGITIS
     Route: 048
     Dates: start: 20190116
  3. LEVOTHYROXINE. [Concomitant]
     Active Substance: LEVOTHYROXINE
  4. OMEPRAZOLE. [Concomitant]
     Active Substance: OMEPRAZOLE
  5. ESCITALOPRAM [Concomitant]
     Active Substance: ESCITALOPRAM OXALATE
  6. URSODIOL. [Concomitant]
     Active Substance: URSODIOL
  7. VITAMIN D [Concomitant]
     Active Substance: VITAMIN D NOS

REACTIONS (1)
  - Pruritus [None]
